FAERS Safety Report 5291091-7 (Version None)
Quarter: 2007Q2

REPORT INFORMATION
  Report Type: 
  Country: None (occurrence: None)
  Receive Date: 20070409
  Receipt Date: 20070402
  Transmission Date: 20071010
  Serious: Yes (Death, Other)
  Sender: FDA-Public Use
  Company Number: US-PURDUE-USA_2007_0026600

PATIENT
  Age: 19 Year
  Sex: Male
  Weight: 118 kg

DRUGS (2)
  1. OXYCONTIN [Suspect]
     Indication: DRUG ABUSER
     Dosage: UNK UNK, UNK
     Route: 048
     Dates: start: 20070209
  2. ALCOHOL [Suspect]
     Indication: ALCOHOL USE
     Dosage: UNK, UNK
     Route: 048
     Dates: start: 20070209

REACTIONS (5)
  - MULTIPLE DRUG OVERDOSE [None]
  - RESPIRATORY DISORDER [None]
  - RESPIRATORY RATE DECREASED [None]
  - SUBSTANCE ABUSE [None]
  - VOMITING [None]
